FAERS Safety Report 17520819 (Version 1)
Quarter: 2020Q1

REPORT INFORMATION
  Report Type: Spontaneous
  Country: JP (occurrence: JP)
  Receive Date: 20200310
  Receipt Date: 20200310
  Transmission Date: 20200409
  Serious: Yes (Death, Hospitalization, Other)
  Sender: FDA-Public Use
  Company Number: JP-PFIZER INC-2015146189

PATIENT
  Age: 75 Year
  Sex: Female

DRUGS (6)
  1. METHOTREXATE SODIUM. [Suspect]
     Active Substance: METHOTREXATE SODIUM
     Dosage: 7.5 MG, WEEKLY
     Dates: end: 19930907
  2. SULINDAC. [Suspect]
     Active Substance: SULINDAC
     Indication: RHEUMATOID ARTHRITIS
     Dosage: 200 MG, DAILY
  3. METHOTREXATE SODIUM. [Suspect]
     Active Substance: METHOTREXATE SODIUM
     Indication: RHEUMATOID ARTHRITIS
     Dosage: 5 MG, WEEKLY
     Dates: start: 1990
  4. BUCILLAMINE [Concomitant]
     Active Substance: BUCILLAMINE
     Indication: RHEUMATOID ARTHRITIS
     Dosage: 300 MG, DAILY
     Dates: start: 1989
  5. BUCILLAMINE [Concomitant]
     Active Substance: BUCILLAMINE
     Dosage: 100 MG, DAILY
  6. PREDNISOLONE. [Concomitant]
     Active Substance: PREDNISOLONE
     Indication: RHEUMATOID ARTHRITIS
     Dosage: 5 MG, DAILY
     Dates: start: 1988

REACTIONS (4)
  - Acute hepatitis B [Fatal]
  - Hepatic function abnormal [Not Recovered/Not Resolved]
  - Renal impairment [Unknown]
  - Hepatitis B reactivation [Fatal]

NARRATIVE: CASE EVENT DATE: 199305
